FAERS Safety Report 24569736 (Version 2)
Quarter: 2024Q4

REPORT INFORMATION
  Report Type: Spontaneous
  Country: CL (occurrence: CL)
  Receive Date: 20241031
  Receipt Date: 20241115
  Transmission Date: 20250114
  Serious: Yes (Hospitalization, Other)
  Sender: Vantive US Healthcare
  Company Number: CL-VANTIVE-2024VAN020584

PATIENT
  Age: 37 Year
  Sex: Male
  Weight: 57 kg

DRUGS (5)
  1. DIANEAL PD-2 WITH DEXTROSE [Suspect]
     Active Substance: CALCIUM CHLORIDE\DEXTROSE\MAGNESIUM CHLORIDE\SODIUM CHLORIDE\SODIUM LACTATE
     Indication: Peritoneal dialysis
     Dosage: UNK
     Route: 033
  2. DIANEAL PD-2 WITH DEXTROSE [Suspect]
     Active Substance: CALCIUM CHLORIDE\DEXTROSE\MAGNESIUM CHLORIDE\SODIUM CHLORIDE\SODIUM LACTATE
     Dosage: UNK
     Route: 033
  3. DIANEAL PD-2 WITH DEXTROSE [Suspect]
     Active Substance: CALCIUM CHLORIDE\DEXTROSE\MAGNESIUM CHLORIDE\SODIUM CHLORIDE\SODIUM LACTATE
     Dosage: UNK
     Route: 033
  4. DIANEAL PD-2 WITH DEXTROSE [Suspect]
     Active Substance: CALCIUM CHLORIDE\DEXTROSE\MAGNESIUM CHLORIDE\SODIUM CHLORIDE\SODIUM LACTATE
     Indication: Peritoneal dialysis
     Route: 033
  5. DIANEAL PD-2 WITH DEXTROSE [Suspect]
     Active Substance: CALCIUM CHLORIDE\DEXTROSE\MAGNESIUM CHLORIDE\SODIUM CHLORIDE\SODIUM LACTATE
     Dosage: UNK
     Route: 033

REACTIONS (10)
  - Septic shock [Unknown]
  - Haemodynamic instability [Unknown]
  - Pain [Recovered/Resolved]
  - Fungal peritonitis [Recovered/Resolved]
  - Peritonitis bacterial [Recovered/Resolved]
  - Abdominal pain [Unknown]
  - Peritoneal cloudy effluent [Recovered/Resolved]
  - Fungal peritonitis [Unknown]
  - Peritoneal cloudy effluent [Unknown]
  - Intra-abdominal fluid collection [Unknown]

NARRATIVE: CASE EVENT DATE: 20240804
